APPROVED DRUG PRODUCT: ENOXAPARIN SODIUM (PRESERVATIVE FREE)
Active Ingredient: ENOXAPARIN SODIUM
Strength: 100MG/ML (100MG/ML)
Dosage Form/Route: INJECTABLE;SUBCUTANEOUS
Application: A205660 | Product #005 | TE Code: AP
Applicant: SHENZHEN TECHDOW PHARMACEUTICAL CO LTD
Approved: Mar 15, 2023 | RLD: No | RS: No | Type: RX